FAERS Safety Report 9246160 (Version 4)
Quarter: 2015Q2

REPORT INFORMATION
  Report Type: Spontaneous
  Country: US (occurrence: US)
  Receive Date: 20130422
  Receipt Date: 20150605
  Transmission Date: 20150821
  Serious: Yes (Hospitalization, Other)
  Sender: FDA-Public Use
  Company Number: US-009507513-1304USA010969

PATIENT
  Sex: Male

DRUGS (3)
  1. PROSCAR [Suspect]
     Active Substance: FINASTERIDE
     Indication: BENIGN PROSTATIC HYPERPLASIA
     Dosage: 5 MG, QD
     Route: 048
     Dates: start: 199602, end: 200703
  2. PROSCAR [Suspect]
     Active Substance: FINASTERIDE
     Dosage: 5 MG, QD
     Route: 048
     Dates: start: 200712, end: 2010
  3. FINASTERIDE. [Suspect]
     Active Substance: FINASTERIDE
     Dosage: 5 MG, QD
     Route: 048
     Dates: start: 20061114, end: 20100316

REACTIONS (24)
  - Groin pain [Unknown]
  - Hand fracture [Unknown]
  - Skin disorder [Unknown]
  - Depression [Not Recovered/Not Resolved]
  - Ejaculation failure [Unknown]
  - Anxiety [Not Recovered/Not Resolved]
  - Ligament sprain [Unknown]
  - Erectile dysfunction [Unknown]
  - Hormone level abnormal [Unknown]
  - Nipple pain [Unknown]
  - Epididymitis [Unknown]
  - Loss of libido [Unknown]
  - Depression [Unknown]
  - Testicular pain [Unknown]
  - Prostatic specific antigen increased [Recovered/Resolved]
  - Sepsis [Unknown]
  - Penis injury [Unknown]
  - Laceration [Unknown]
  - Insomnia [Unknown]
  - Prostatitis [Not Recovered/Not Resolved]
  - Cognitive disorder [Not Recovered/Not Resolved]
  - Hyperlipidaemia [Unknown]
  - Sexual dysfunction [Not Recovered/Not Resolved]
  - Semen volume decreased [Unknown]

NARRATIVE: CASE EVENT DATE: 199608
